FAERS Safety Report 12078913 (Version 1)
Quarter: 2016Q1

REPORT INFORMATION
  Report Type: Spontaneous
  Country: US (occurrence: US)
  Receive Date: 20160216
  Receipt Date: 20160216
  Transmission Date: 20160526
  Serious: Yes (Other)
  Sender: FDA-Public Use
  Company Number: US-ROCHE-1710987

PATIENT
  Age: 13 Year
  Sex: Male

DRUGS (8)
  1. TAMIFLU [Suspect]
     Active Substance: OSELTAMIVIR PHOSPHATE
     Indication: INFLUENZA
     Route: 065
     Dates: start: 20160211
  2. ZYRTEC [Concomitant]
     Active Substance: CETIRIZINE HYDROCHLORIDE
  3. NASONEX [Concomitant]
     Active Substance: MOMETASONE FUROATE
  4. ALLERGY SHOTS [Concomitant]
     Active Substance: UNSPECIFIED INGREDIENT
     Indication: HOUSE DUST ALLERGY
  5. SINGULAIR [Concomitant]
     Active Substance: MONTELUKAST SODIUM
  6. TYLENOL [Concomitant]
     Active Substance: ACETAMINOPHEN
     Indication: PYREXIA
  7. MOTRIN [Concomitant]
     Active Substance: IBUPROFEN
     Indication: PYREXIA
  8. PROAIR HFA [Concomitant]
     Active Substance: ALBUTEROL SULFATE
     Indication: ASTHMA

REACTIONS (6)
  - Abnormal behaviour [Unknown]
  - Hallucination [Unknown]
  - Disorientation [Unknown]
  - Delirium [Unknown]
  - Pyrexia [Recovering/Resolving]
  - Confusional state [Unknown]
